FAERS Safety Report 6519707-5 (Version None)
Quarter: 2009Q4

REPORT INFORMATION
  Report Type: 
  Country: None (occurrence: None)
  Receive Date: 20091228
  Receipt Date: 20091216
  Transmission Date: 20100525
  Serious: Yes (Hospitalization)
  Sender: FDA-Public Use
  Company Number: FR-PFIZER INC-2009310867

PATIENT
  Age: 48 Year
  Sex: Female

DRUGS (4)
  1. XANAX [Suspect]
     Dosage: UNK MG, UNK
     Route: 048
  2. METFORMIN HCL [Suspect]
     Indication: DIABETES MELLITUS
     Dosage: LONG TERM
     Route: 048
  3. BYETTA [Suspect]
     Indication: TYPE 2 DIABETES MELLITUS
     Dosage: 5 UG, UNK
     Route: 058
     Dates: start: 20090920, end: 20090924
  4. PROZAC [Suspect]
     Indication: DEPRESSIVE SYMPTOM
     Dosage: LONG TERM
     Route: 048

REACTIONS (4)
  - AGITATION [None]
  - DECREASED APPETITE [None]
  - DEPRESSION [None]
  - SUICIDAL IDEATION [None]
